FAERS Safety Report 6054372-5 (Version None)
Quarter: 2009Q1

REPORT INFORMATION
  Report Type: 
  Country: None (occurrence: None)
  Receive Date: 20090127
  Receipt Date: 20090122
  Transmission Date: 20090719
  Serious: Yes (Death, Life-Threatening, Hospitalization)
  Sender: FDA-Public Use
  Company Number: JP-SANOFI-SYNTHELABO-F01200900088

PATIENT
  Sex: Male
  Weight: 59.8 kg

DRUGS (13)
  1. LANSOPRAZOLE [Concomitant]
     Indication: GASTRIC DISORDER
     Dosage: 15 MG
     Route: 048
     Dates: start: 20080815
  2. ROSUVASTATIN [Concomitant]
     Dosage: 2.5 MG
     Route: 048
     Dates: start: 20080815
  3. NICORANDIL [Concomitant]
     Indication: ACUTE MYOCARDIAL INFARCTION
     Dosage: 6 MG/HOUR
     Route: 042
     Dates: start: 20080814, end: 20080815
  4. NICORANDIL [Concomitant]
     Route: 048
     Dates: start: 20080815
  5. CARVEDILOL [Concomitant]
     Indication: ACUTE MYOCARDIAL INFARCTION
     Dosage: 25 MG
     Route: 048
     Dates: start: 20080814, end: 20080821
  6. CARVEDILOL [Concomitant]
     Dosage: 5 MG
     Route: 048
     Dates: start: 20080822, end: 20080829
  7. CARVEDILOL [Concomitant]
     Dosage: 10 MG
     Route: 048
     Dates: start: 20080830
  8. HEPARIN [Concomitant]
     Indication: ACUTE MYOCARDIAL INFARCTION
     Dosage: 10000 UNIT
     Route: 042
     Dates: start: 20080814, end: 20080814
  9. HEPARIN [Concomitant]
     Dosage: 600 IU/HOUR
     Route: 042
     Dates: start: 20080814, end: 20080817
  10. ASPIRIN [Concomitant]
     Indication: ACUTE MYOCARDIAL INFARCTION
     Dosage: 200 MG
     Route: 048
     Dates: start: 20080814, end: 20080814
  11. ASPIRIN [Concomitant]
     Dosage: 100 MG
     Route: 048
     Dates: start: 20080815
  12. CLOPIDOGREL [Suspect]
     Indication: ACUTE MYOCARDIAL INFARCTION
     Dosage: STARTING DOSE 300 MG
     Route: 048
     Dates: start: 20080814, end: 20080814
  13. CLOPIDOGREL [Suspect]
     Dosage: MAINTENANCE DOSE
     Route: 048
     Dates: start: 20080815

REACTIONS (3)
  - FAT EMBOLISM [None]
  - GASTROINTESTINAL HAEMORRHAGE [None]
  - PANCREATIC CARCINOMA [None]
